FAERS Safety Report 24804076 (Version 4)
Quarter: 2025Q2

REPORT INFORMATION
  Report Type: Report from Study
  Country: TH (occurrence: TH)
  Receive Date: 20250103
  Receipt Date: 20250527
  Transmission Date: 20250716
  Serious: Yes (Hospitalization, Other)
  Sender: EXELIXIS
  Company Number: TH-IPSEN Group, Research and Development-2024-19493

PATIENT
  Age: 66 Year
  Sex: Male

DRUGS (3)
  1. CABOMETYX [Suspect]
     Active Substance: CABOZANTINIB S-MALATE
     Indication: Hepatocellular carcinoma
     Dosage: 60 MG, QD
     Route: 048
     Dates: start: 20240807
  2. CABOMETYX [Suspect]
     Active Substance: CABOZANTINIB S-MALATE
     Dosage: 60 MG, QOD, EVERY OTHER DAY
     Route: 048
     Dates: start: 20240925
  3. CABOMETYX [Suspect]
     Active Substance: CABOZANTINIB S-MALATE
     Dosage: 40 MG, QD
     Route: 048
     Dates: start: 20250429

REACTIONS (16)
  - Nephropathy toxic [Unknown]
  - Electrolyte imbalance [Unknown]
  - Hepatic function abnormal [Unknown]
  - Colitis [Unknown]
  - Blood creatinine increased [Unknown]
  - Hypotension [Unknown]
  - Renal impairment [Unknown]
  - Mouth ulceration [Unknown]
  - Fatigue [Unknown]
  - Decreased appetite [Unknown]
  - Proteinuria [Unknown]
  - Drug intolerance [Unknown]
  - Therapy cessation [Unknown]
  - Drug ineffective [Unknown]
  - Intentional product misuse [Unknown]
  - Off label use [Unknown]

NARRATIVE: CASE EVENT DATE: 20240925
